FAERS Safety Report 9862516 (Version 1)
Quarter: 2014Q1

REPORT INFORMATION
  Report Type: Spontaneous
  Country: US (occurrence: US)
  Receive Date: 20140203
  Receipt Date: 20140203
  Transmission Date: 20141002
  Serious: Yes (Hospitalization)
  Sender: FDA-Public Use
  Company Number: US-BAXTER-2014BAX003929

PATIENT
  Age: 33 Year
  Sex: Male

DRUGS (7)
  1. DIANEAL LOW CALCIUM [Suspect]
     Indication: PERITONEAL DIALYSIS
     Route: 033
     Dates: start: 201212
  2. DIANEAL LOW CALCIUM [Suspect]
     Dosage: LAST FILL
     Route: 033
  3. DIANEAL LOW CALCIUM [Suspect]
     Indication: PERITONEAL DIALYSIS
     Route: 033
     Dates: start: 201212
  4. DIANEAL LOW CALCIUM [Suspect]
     Dosage: LAST FILL
     Route: 033
  5. LASIX [Concomitant]
     Indication: HYPERTENSION
     Route: 048
  6. LOSARTAN [Concomitant]
     Indication: HYPERTENSION
     Route: 048
  7. LABETALOL [Concomitant]
     Indication: HYPERTENSION
     Route: 048
     Dates: end: 201401

REACTIONS (4)
  - Pulmonary oedema [Not Recovered/Not Resolved]
  - Local swelling [Recovered/Resolved]
  - Azotaemia [Recovered/Resolved]
  - Hypertension [Recovered/Resolved]
